FAERS Safety Report 25963079 (Version 1)
Quarter: 2025Q4

REPORT INFORMATION
  Report Type: Spontaneous
  Country: GB (occurrence: GB)
  Receive Date: 20251027
  Receipt Date: 20251027
  Transmission Date: 20260118
  Serious: Yes (Other)
  Sender: ADVANZ PHARMA
  Company Number: None

PATIENT

DRUGS (2)
  1. PREDNISOLONE [Suspect]
     Active Substance: PREDNISOLONE
     Indication: Asthma
     Dosage: 60 MG (60 MG FOR 8 DAYS THEN 10 MG TAPER)
  2. PREDNISOLONE [Suspect]
     Active Substance: PREDNISOLONE
     Dosage: 10 MG (60 MG FOR 8 DAYS THEN 10 MG TAPER)

REACTIONS (5)
  - Brain fog [Not Recovered/Not Resolved]
  - Contusion [Not Recovered/Not Resolved]
  - Euphoric mood [Recovered/Resolved]
  - Swelling [Not Recovered/Not Resolved]
  - Headache [Not Recovered/Not Resolved]

NARRATIVE: CASE EVENT DATE: 20251006
